FAERS Safety Report 9464959 (Version 2)
Quarter: 2013Q3

REPORT INFORMATION
  Report Type: Spontaneous
  Country: US (occurrence: US)
  Receive Date: 20130819
  Receipt Date: 20130819
  Transmission Date: 20140515
  Serious: Yes (Other)
  Sender: FDA-Public Use
  Company Number: US-009507513-2010SP041751

PATIENT
  Sex: Female
  Weight: 70.31 kg

DRUGS (2)
  1. NUVARING [Suspect]
     Indication: CONTRACEPTION
     Dosage: UNK
     Route: 067
     Dates: start: 200407, end: 2005
  2. NUVARING [Suspect]
     Indication: OVARIAN CYST
     Dosage: UNK
     Route: 067
     Dates: start: 200504, end: 20070616

REACTIONS (26)
  - Basedow^s disease [Unknown]
  - Ovarian cyst [Unknown]
  - Deep vein thrombosis [Recovering/Resolving]
  - Contusion [Unknown]
  - Arthralgia [Unknown]
  - Smear cervix abnormal [Recovered/Resolved]
  - Dyspnoea [Unknown]
  - Pain in extremity [Unknown]
  - Liver function test abnormal [Recovering/Resolving]
  - Basedow^s disease [Unknown]
  - Factor V Leiden mutation [Not Recovered/Not Resolved]
  - Palpitations [Recovered/Resolved]
  - Tachycardia [Recovered/Resolved]
  - Tremor [Unknown]
  - Oedema peripheral [Unknown]
  - Raynaud^s phenomenon [Unknown]
  - Pruritus [Unknown]
  - Pain [Unknown]
  - Fatigue [Recovering/Resolving]
  - Dyspnoea [Recovered/Resolved]
  - Autoimmune hepatitis [Unknown]
  - Abdominal pain [Recovered/Resolved]
  - Nausea [Recovered/Resolved]
  - Faeces discoloured [Unknown]
  - Decreased appetite [Unknown]
  - Diarrhoea [Unknown]
